FAERS Safety Report 4411193-4 (Version None)
Quarter: 2004Q3

REPORT INFORMATION
  Report Type: 
  Country: None (occurrence: None)
  Receive Date: 20040727
  Receipt Date: 20040715
  Transmission Date: 20050211
  Serious: Yes (Hospitalization, Other)
  Sender: FDA-Public Use
  Company Number: HQWYE186016JUL04

PATIENT
  Age: 49 Year
  Sex: Male

DRUGS (1)
  1. RAPAMUNE [Suspect]
     Indication: PROPHYLAXIS AGAINST TRANSPLANT REJECTION
     Dosage: ORAL
     Route: 048
     Dates: start: 19990418, end: 19991216

REACTIONS (4)
  - BLADDER MASS [None]
  - CYSTITIS GLANDULARIS [None]
  - GASTROINTESTINAL DISORDER [None]
  - METAPLASIA [None]
